APPROVED DRUG PRODUCT: METRONIDAZOLE
Active Ingredient: METRONIDAZOLE
Strength: 375MG
Dosage Form/Route: CAPSULE;ORAL
Application: A076505 | Product #001
Applicant: ABLE LABORATORIES INC
Approved: Nov 13, 2003 | RLD: No | RS: No | Type: DISCN